FAERS Safety Report 8533684-7 (Version None)
Quarter: 2012Q3

REPORT INFORMATION
  Report Type: 
  Country: None (occurrence: None)
  Receive Date: 20120724
  Receipt Date: 20120719
  Transmission Date: 20120928
  Serious: No
  Sender: FDA-Public Use
  Company Number: US-PFIZER INC-2012174810

PATIENT

DRUGS (1)
  1. LEVOXYL [Suspect]
     Dosage: 100 UG, UNK

REACTIONS (1)
  - HYPERSENSITIVITY [None]
